FAERS Safety Report 6849533-9 (Version None)
Quarter: 2010Q3

REPORT INFORMATION
  Report Type: 
  Country: None (occurrence: None)
  Receive Date: 20100716
  Receipt Date: 20090522
  Transmission Date: 20110219
  Serious: No
  Sender: FDA-Public Use
  Company Number: US-PFIZER INC-2007082702

PATIENT
  Sex: Female
  Weight: 86.3 kg

DRUGS (4)
  1. CHANTIX [Suspect]
     Dates: start: 20060101
  2. NAPROXEN [Concomitant]
  3. BUPROPION [Concomitant]
  4. IMIPRAMINE [Concomitant]

REACTIONS (6)
  - DEHYDRATION [None]
  - GASTROENTERITIS VIRAL [None]
  - HYPERHIDROSIS [None]
  - HYPOPHAGIA [None]
  - NAUSEA [None]
  - VOMITING [None]
